FAERS Safety Report 5955610-7 (Version None)
Quarter: 2008Q4

REPORT INFORMATION
  Report Type: 
  Country: None (occurrence: None)
  Receive Date: 20081117
  Receipt Date: 20081113
  Transmission Date: 20090506
  Serious: Yes (Hospitalization, Other)
  Sender: FDA-Public Use
  Company Number: BR-ABBOTT-07P-020-0431141-00

PATIENT
  Sex: Male
  Weight: 61 kg

DRUGS (9)
  1. HUMIRA [Suspect]
     Indication: RHEUMATOID ARTHRITIS
     Route: 058
     Dates: end: 20070701
  2. HUMIRA [Suspect]
     Dates: start: 20081107
  3. PENTAL [Concomitant]
     Indication: DRUG USE FOR UNKNOWN INDICATION
  4. CLONAZEPAM [Concomitant]
     Indication: DRUG USE FOR UNKNOWN INDICATION
  5. ESCITALOPRAM OXALATE [Concomitant]
     Indication: DRUG USE FOR UNKNOWN INDICATION
  6. PREDNISONE TAB [Concomitant]
     Indication: DRUG USE FOR UNKNOWN INDICATION
  7. ENOXAPARIN SODIUM [Concomitant]
     Indication: DRUG USE FOR UNKNOWN INDICATION
  8. KD [Concomitant]
     Indication: DRUG USE FOR UNKNOWN INDICATION
  9. ATORVASTATIN CALCIUM [Concomitant]
     Indication: DRUG USE FOR UNKNOWN INDICATION

REACTIONS (12)
  - BLOOD PRESSURE ABNORMAL [None]
  - BONE DISORDER [None]
  - CEREBRAL HAEMORRHAGE [None]
  - COMA [None]
  - DYSPHASIA [None]
  - FAECAL INCONTINENCE [None]
  - FALL [None]
  - FEMUR FRACTURE [None]
  - HYPOKINESIA [None]
  - NECROSIS [None]
  - TRACHEOSTOMY [None]
  - URINARY INCONTINENCE [None]
